FAERS Safety Report 4290622-3 (Version None)
Quarter: 2004Q1

REPORT INFORMATION
  Report Type: 
  Country: None (occurrence: None)
  Receive Date: 20040203
  Receipt Date: 19990211
  Transmission Date: 20041129
  Serious: Yes (Death)
  Sender: FDA-Public Use
  Company Number: KII-1999-0001104

PATIENT

DRUGS (1)
  1. OXYCONTIN [Suspect]
     Dosage: 600 MG, Q8H

REACTIONS (1)
  - DEATH [None]
